FAERS Safety Report 25802233 (Version 1)
Quarter: 2025Q3

REPORT INFORMATION
  Report Type: Spontaneous
  Country: US (occurrence: US)
  Receive Date: 20250915
  Receipt Date: 20250915
  Transmission Date: 20251021
  Serious: Yes (Other)
  Sender: MAIA PHARMACEUTICALS
  Company Number: US-MAI-MAI202509-000157

PATIENT
  Age: 33 Year
  Sex: Male

DRUGS (4)
  1. BACLOFEN [Suspect]
     Active Substance: BACLOFEN
     Indication: Muscle spasticity
     Route: 037
  2. BACLOFEN [Suspect]
     Active Substance: BACLOFEN
     Route: 048
  3. MIDAZOLAM [Concomitant]
     Active Substance: MIDAZOLAM
     Indication: Pulseless electrical activity
     Route: 042
  4. CLONAZEPAM [Concomitant]
     Active Substance: CLONAZEPAM
     Indication: Product used for unknown indication
     Route: 065

REACTIONS (5)
  - Pulseless electrical activity [Recovered/Resolved]
  - Drug withdrawal syndrome [Recovered/Resolved]
  - Supraventricular tachycardia [Unknown]
  - Hypotension [Unknown]
  - Mental status changes [Unknown]
